FAERS Safety Report 8339519-X (Version None)
Quarter: 2012Q2

REPORT INFORMATION
  Report Type: 
  Country: None (occurrence: None)
  Receive Date: 20120507
  Receipt Date: 20120426
  Transmission Date: 20120825
  Serious: Yes (Other)
  Sender: FDA-Public Use
  Company Number: US-GENZYME-POMP-1002020

PATIENT
  Sex: Female
  Weight: 99.773 kg

DRUGS (3)
  1. LUMIZYME [Suspect]
     Indication: GLYCOGEN STORAGE DISEASE TYPE II
     Dosage: 19.04 MG/KG, Q2W
     Route: 042
     Dates: start: 20070401
  2. TYLENOL (CAPLET) [Concomitant]
     Indication: PREMEDICATION
     Route: 065
  3. BENADRYL [Concomitant]
     Indication: PREMEDICATION
     Route: 065

REACTIONS (3)
  - DEEP VEIN THROMBOSIS [None]
  - FALL [None]
  - LOWER LIMB FRACTURE [None]
